FAERS Safety Report 16263629 (Version 5)
Quarter: 2020Q2

REPORT INFORMATION
  Report Type: Spontaneous
  Country: US (occurrence: US)
  Receive Date: 20190502
  Receipt Date: 20200616
  Transmission Date: 20200713
  Serious: Yes (Congenital Anomaly, Other)
  Sender: FDA-Public Use
  Company Number: PHEH2019US018468

PATIENT
  Sex: Male

DRUGS (1)
  1. ZOFRAN [Suspect]
     Active Substance: ONDANSETRON HYDROCHLORIDE
     Indication: FOETAL EXPOSURE DURING PREGNANCY
     Dosage: MOTHER DOSE: UNK, PRN
     Route: 064

REACTIONS (31)
  - White blood cell count decreased [Unknown]
  - Pyrexia [Unknown]
  - Accident [Unknown]
  - Fall [Unknown]
  - Contusion [Unknown]
  - Gait disturbance [Unknown]
  - Cardiomegaly [Unknown]
  - Cardiac murmur [Unknown]
  - Wheezing [Unknown]
  - Bundle branch block right [Unknown]
  - Foetal exposure during pregnancy [Unknown]
  - QRS axis abnormal [Unknown]
  - Rhinorrhoea [Unknown]
  - Bronchial hyperreactivity [Unknown]
  - Productive cough [Unknown]
  - Wandering pacemaker [Unknown]
  - Syncope [Unknown]
  - Injury [Unknown]
  - Dry skin [Unknown]
  - Tachypnoea [Unknown]
  - Blood glucose increased [Unknown]
  - Atrial septal defect [Unknown]
  - Pain [Unknown]
  - Ventricular septal defect [Unknown]
  - Aberrant aortic arch [Unknown]
  - Bronchitis mycoplasmal [Unknown]
  - Mycoplasma test positive [Unknown]
  - Lung hyperinflation [Unknown]
  - Muscle spasticity [Unknown]
  - Right ventricular hypertrophy [Unknown]
  - Haemoglobin decreased [Unknown]
